FAERS Safety Report 6164903-2 (Version None)
Quarter: 2009Q2

REPORT INFORMATION
  Report Type: 
  Country: None (occurrence: None)
  Receive Date: 20090423
  Receipt Date: 20090420
  Transmission Date: 20091009
  Serious: Yes (Death)
  Sender: FDA-Public Use
  Company Number: AU-AVENTIS-200913401GDDC

PATIENT
  Age: 72 Year
  Sex: Female

DRUGS (1)
  1. ARAVA [Suspect]
     Dates: start: 20010531

REACTIONS (1)
  - DEATH [None]
